FAERS Safety Report 4753627-1 (Version None)
Quarter: 2005Q3

REPORT INFORMATION
  Report Type: 
  Country: None (occurrence: None)
  Receive Date: 20050824
  Receipt Date: 20050808
  Transmission Date: 20060218
  Serious: Yes (Other)
  Sender: FDA-Public Use
  Company Number: 2005-BP-13509RO

PATIENT
  Age: 40 Year
  Sex: Male

DRUGS (6)
  1. LITHIUM CARBONATE [Suspect]
     Indication: DEPRESSION
  2. FLUVOXAMINE MALEATE [Suspect]
     Indication: DEPRESSION
     Dosage: 300 MG
  3. MIRTAZAPINE [Suspect]
     Indication: DEPRESSION
     Dosage: 60 MG, PO
     Route: 048
  4. PAROXETINE HCL [Suspect]
     Indication: DEPRESSION
     Dosage: 60 MG
  5. VENLAFAXINE HCL [Suspect]
     Indication: DEPRESSION
     Dosage: 225 MG
  6. CLORIMIPRAMINE [Suspect]
     Indication: DEPRESSION
     Dosage: 300 MG

REACTIONS (2)
  - DRUG INTERACTION [None]
  - SOMNOLENCE [None]
